FAERS Safety Report 9233954 (Version 1)
Quarter: 2013Q2

REPORT INFORMATION
  Report Type: Spontaneous
  Country: US (occurrence: US)
  Receive Date: 20130416
  Receipt Date: 20130416
  Transmission Date: 20140414
  Serious: No
  Sender: FDA-Public Use
  Company Number: US-B.I. PHARMACEUTICALS,INC./RIDGEFIELD-2013-BI-08787BP

PATIENT
  Age: 74 Year
  Sex: Female
  Weight: 62 kg

DRUGS (4)
  1. SPIRIVA [Suspect]
     Indication: CHRONIC OBSTRUCTIVE PULMONARY DISEASE
     Dosage: 18 MCG
     Route: 055
     Dates: start: 201106
  2. SPIRIVA [Suspect]
     Route: 048
     Dates: start: 2012, end: 2012
  3. DEXILANT [Concomitant]
     Indication: DYSPEPSIA
     Route: 048
     Dates: start: 201212
  4. PLAVIX [Concomitant]
     Indication: CEREBROVASCULAR ACCIDENT PROPHYLAXIS
     Route: 048
     Dates: start: 2008

REACTIONS (5)
  - Irritable bowel syndrome [Not Recovered/Not Resolved]
  - Duodenal ulcer [Recovered/Resolved]
  - Dyspepsia [Not Recovered/Not Resolved]
  - Incorrect route of drug administration [Recovered/Resolved]
  - Product quality issue [Unknown]
